FAERS Safety Report 25421903 (Version 1)
Quarter: 2025Q2

REPORT INFORMATION
  Report Type: Spontaneous
  Country: CN (occurrence: CN)
  Receive Date: 20250611
  Receipt Date: 20250611
  Transmission Date: 20250716
  Serious: Yes (Other)
  Sender: SANDOZ
  Company Number: CN-002147023-NVSC2025CN091312

PATIENT
  Age: 88 Year
  Sex: Female
  Weight: 50 kg

DRUGS (1)
  1. DEXAMETHASONE\TOBRAMYCIN [Suspect]
     Active Substance: DEXAMETHASONE\TOBRAMYCIN
     Indication: Cataract
     Dosage: 6 DROP, QD 2.000 DRP, TID (EXTERNAL USE)
     Route: 065
     Dates: start: 20250517, end: 20250519

REACTIONS (6)
  - Corneal epithelium defect [Recovering/Resolving]
  - Corneal oedema [Recovering/Resolving]
  - Photophobia [Recovering/Resolving]
  - Lacrimation increased [Recovering/Resolving]
  - Eye pain [Recovering/Resolving]
  - Eye pruritus [Recovering/Resolving]

NARRATIVE: CASE EVENT DATE: 20250519
